FAERS Safety Report 11050677 (Version 1)
Quarter: 2015Q2

REPORT INFORMATION
  Report Type: Spontaneous
  Country: US (occurrence: None)
  Receive Date: 20150417
  Receipt Date: 20150417
  Transmission Date: 20150821
  Serious: Yes (Other)
  Sender: FDA-Public Use
  Company Number: 201504036

PATIENT
  Age: 52 Year
  Sex: Male

DRUGS (1)
  1. THEO-24 [Suspect]
     Active Substance: THEOPHYLLINE ANHYDROUS
     Route: 048

REACTIONS (4)
  - Dyspnoea [None]
  - Flushing [None]
  - Paraesthesia [None]
  - Product label issue [None]
